FAERS Safety Report 17107754 (Version 1)
Quarter: 2019Q4

REPORT INFORMATION
  Report Type: Spontaneous
  Country: FR (occurrence: FR)
  Receive Date: 20191203
  Receipt Date: 20191203
  Transmission Date: 20200122
  Serious: Yes (Death)
  Sender: FDA-Public Use
  Company Number: FR-PFIZER INC-2019517390

PATIENT
  Age: 84 Year
  Sex: Male
  Weight: 68 kg

DRUGS (5)
  1. SKENAN [Suspect]
     Active Substance: MORPHINE SULFATE
     Indication: CANCER PAIN
     Dosage: 2 DF, 1X/DAY
     Route: 048
     Dates: start: 20190227, end: 201903
  2. ACTISKENAN [Suspect]
     Active Substance: MORPHINE SULFATE
     Indication: CANCER PAIN
     Dosage: UNK (UP TO 6/DAY)
     Route: 048
     Dates: start: 20190227, end: 201903
  3. PREDNISOLONE. [Concomitant]
     Active Substance: PREDNISOLONE
     Dosage: UNK
  4. NEURONTIN [Suspect]
     Active Substance: GABAPENTIN
     Indication: CANCER PAIN
     Dosage: 3 DF, 1X/DAY
     Route: 048
     Dates: start: 20190227, end: 201903
  5. ABIRATERONE ACETATE. [Concomitant]
     Active Substance: ABIRATERONE ACETATE
     Dosage: UNK

REACTIONS (2)
  - Hallucination [Fatal]
  - Confusional state [Fatal]

NARRATIVE: CASE EVENT DATE: 201902
